FAERS Safety Report 24879723 (Version 2)
Quarter: 2025Q1

REPORT INFORMATION
  Report Type: Spontaneous
  Country: US (occurrence: US)
  Receive Date: 20250123
  Receipt Date: 20250227
  Transmission Date: 20250408
  Serious: Yes (Hospitalization)
  Sender: PARI RESPIRATORY EQUIPMENT
  Company Number: US-PARI RESPIRATORY EQUIPMENT, INC.-2025PAR00004

PATIENT
  Sex: Male
  Weight: 11.882 kg

DRUGS (2)
  1. KITABIS PAK [Suspect]
     Active Substance: TOBRAMYCIN
     Indication: Illness
     Dosage: 300 MG (1 AMPULE) TWICE A DAY FOR 14 DAYS ON AND 14 DAYS OFF
     Dates: start: 202411
  2. ALBUTEROL [Concomitant]
     Active Substance: ALBUTEROL

REACTIONS (3)
  - Influenza [Recovered/Resolved]
  - Respiratory syncytial virus infection [Recovered/Resolved]
  - Off label use [Not Recovered/Not Resolved]
